APPROVED DRUG PRODUCT: CEFUROXIME AXETIL
Active Ingredient: CEFUROXIME AXETIL
Strength: EQ 250MG BASE
Dosage Form/Route: TABLET;ORAL
Application: A065496 | Product #001 | TE Code: AB
Applicant: ALKEM LABORATORIES LTD
Approved: Jun 7, 2010 | RLD: No | RS: No | Type: RX